FAERS Safety Report 24091690 (Version 3)
Quarter: 2024Q3

REPORT INFORMATION
  Report Type: Spontaneous
  Country: DE (occurrence: DE)
  Receive Date: 20240715
  Receipt Date: 20240830
  Transmission Date: 20241017
  Serious: Yes (Death, Hospitalization)
  Sender: BOEHRINGER INGELHEIM
  Company Number: DE-BoehringerIngelheim-2024-BI-039739

PATIENT
  Age: 79 Year
  Sex: Female

DRUGS (8)
  1. OFEV [Suspect]
     Active Substance: NINTEDANIB
     Indication: Pulmonary fibrosis
     Dates: start: 201801, end: 202401
  2. OFEV [Suspect]
     Active Substance: NINTEDANIB
     Dates: start: 202401, end: 202404
  3. RAMIPRIL [Concomitant]
     Active Substance: RAMIPRIL
     Indication: Product used for unknown indication
     Route: 048
     Dates: end: 20240410
  4. AMLODIPINE BESYLATE [Concomitant]
     Active Substance: AMLODIPINE BESYLATE
     Indication: Product used for unknown indication
     Route: 048
     Dates: end: 20240410
  5. TORSEMIDE [Concomitant]
     Active Substance: TORSEMIDE
     Indication: Product used for unknown indication
     Route: 048
     Dates: end: 20240410
  6. PANTOPRAZOLE SODIUM [Concomitant]
     Active Substance: PANTOPRAZOLE SODIUM
     Indication: Product used for unknown indication
     Route: 048
     Dates: end: 20240410
  7. Amitriptylin 25 mg [Concomitant]
     Indication: Product used for unknown indication
     Route: 048
     Dates: end: 20240410
  8. Vigantol 1000 IE [Concomitant]
     Indication: Product used for unknown indication
     Route: 048
     Dates: end: 20240410

REACTIONS (19)
  - Atypical pneumonia [Fatal]
  - Bone lesion [Unknown]
  - Weight decreased [Unknown]
  - Diarrhoea [Not Recovered/Not Resolved]
  - Breast paraesthesia [Not Recovered/Not Resolved]
  - Skin burning sensation [Not Recovered/Not Resolved]
  - Urinary tract infection [Unknown]
  - Type 2 diabetes mellitus [Unknown]
  - Aortic arteriosclerosis [Unknown]
  - Diverticulum intestinal [Unknown]
  - Osteoarthritis [Unknown]
  - Osteopenia [Unknown]
  - Hyperkalaemia [Unknown]
  - Renal impairment [Unknown]
  - Lung consolidation [Unknown]
  - Positron emission tomogram abnormal [Unknown]
  - Infection [Unknown]
  - Diarrhoea [Unknown]
  - Sputum discoloured [Unknown]

NARRATIVE: CASE EVENT DATE: 20210101
